FAERS Safety Report 13620860 (Version 2)
Quarter: 2019Q1

REPORT INFORMATION
  Report Type: Report from Study
  Country: None (occurrence: US)
  Receive Date: 20170607
  Receipt Date: 20190122
  Transmission Date: 20190417
  Serious: Yes (Other)
  Sender: FDA-Public Use
  Company Number: US-ABBVIE-17K-163-1999049-00

PATIENT
  Sex: Female

DRUGS (1)
  1. HUMIRA [Suspect]
     Active Substance: ADALIMUMAB
     Indication: RHEUMATOID ARTHRITIS
     Route: 058

REACTIONS (13)
  - Arthralgia [Unknown]
  - Sinus disorder [Unknown]
  - Musculoskeletal pain [Unknown]
  - Neck pain [Unknown]
  - Epilepsy [Unknown]
  - Neurological procedural complication [Unknown]
  - Musculoskeletal disorder [Unknown]
  - Sciatica [Unknown]
  - Hernia [Unknown]
  - Nasopharyngitis [Unknown]
  - Mobility decreased [Unknown]
  - Ligament rupture [Unknown]
  - Joint swelling [Unknown]

NARRATIVE: CASE EVENT DATE: 2018
